FAERS Safety Report 7364028-4 (Version None)
Quarter: 2011Q1

REPORT INFORMATION
  Report Type: 
  Country: None (occurrence: None)
  Receive Date: 20110225
  Receipt Date: 20100603
  Transmission Date: 20110831
  Serious: Yes (Death)
  Sender: FDA-Public Use
  Company Number: 2010BH014985

PATIENT

DRUGS (2)
  1. BREVIBLOC [Suspect]
     Indication: PRODUCT USED FOR UNKNOWN INDICATION
     Dosage: 20 BAG; EVERY DAY
     Dates: start: 20100101
  2. BREVIBLOC [Suspect]
     Indication: PRODUCT USED FOR UNKNOWN INDICATION
     Dosage: 20 BAG; EVERY DAY
     Dates: start: 20100101

REACTIONS (1)
  - DEATH [None]
